FAERS Safety Report 9371614 (Version 2)
Quarter: 2013Q3

REPORT INFORMATION
  Report Type: Report from Study
  Country: US (occurrence: US)
  Receive Date: 20130627
  Receipt Date: 20130710
  Transmission Date: 20140515
  Serious: Yes (Other)
  Sender: FDA-Public Use
  Company Number: PHEH2013US013663

PATIENT
  Age: 59 Year
  Sex: Female
  Weight: 84.82 kg

DRUGS (1)
  1. DIOVAN HCT [Suspect]
     Dosage: UNK (160/25), UNK

REACTIONS (2)
  - Cerebrovascular accident [Recovered/Resolved with Sequelae]
  - Hemiplegia [Unknown]
